FAERS Safety Report 6076172-2 (Version None)
Quarter: 2009Q1

REPORT INFORMATION
  Report Type: 
  Country: None (occurrence: None)
  Receive Date: 20090212
  Receipt Date: 20081013
  Transmission Date: 20090719
  Serious: No
  Sender: FDA-Public Use
  Company Number: US-B.I. PHARMACEUTICALS,INC./RIDGEFIELD-2009-BP-01775BP

PATIENT
  Age: 58 Year
  Sex: Female

DRUGS (4)
  1. CLONIDINE HCL [Suspect]
     Indication: HYPERTENSION
  2. CLONIDINE HCL [Suspect]
     Indication: ABDOMINAL NEOPLASM
  3. HRT PATCH [Concomitant]
     Indication: MENOPAUSE
  4. CLONIDINE TABS (GENERIC) [Concomitant]
     Indication: HYPERTENSION
     Dosage: .8MG
     Route: 048
     Dates: start: 20080401

REACTIONS (1)
  - DRUG INEFFECTIVE [None]
